FAERS Safety Report 24411107 (Version 1)
Quarter: 2024Q4

REPORT INFORMATION
  Report Type: Spontaneous
  Country: DE (occurrence: DE)
  Receive Date: 20241008
  Receipt Date: 20241008
  Transmission Date: 20250114
  Serious: Yes (Other)
  Sender: LUNDBECK
  Company Number: DE-EMA-DD-20230503-7222538-151458

PATIENT

DRUGS (10)
  1. CLOBAZAM [Suspect]
     Active Substance: CLOBAZAM
     Indication: Epilepsy with myoclonic-atonic seizures
     Dosage: UNK
  2. LEVETIRACETAM [Suspect]
     Active Substance: LEVETIRACETAM
     Indication: Epilepsy with myoclonic-atonic seizures
     Dosage: UNK
  3. CLONAZEPAM [Suspect]
     Active Substance: CLONAZEPAM
     Indication: Epilepsy with myoclonic-atonic seizures
     Dosage: UNK
  4. ZONISAMIDE [Suspect]
     Active Substance: ZONISAMIDE
     Indication: Epilepsy with myoclonic-atonic seizures
     Dosage: UNK
     Route: 048
     Dates: start: 2013, end: 2013
  5. LAMOTRIGINE [Suspect]
     Active Substance: LAMOTRIGINE
     Indication: Epilepsy with myoclonic-atonic seizures
     Dosage: UNK
     Dates: end: 201802
  6. VALPROIC ACID [Suspect]
     Active Substance: VALPROIC ACID
     Indication: Epilepsy with myoclonic-atonic seizures
     Dosage: UNK
  7. PRIMIDONE [Suspect]
     Active Substance: PRIMIDONE
     Indication: Epilepsy with myoclonic-atonic seizures
     Dosage: UNK
  8. ETHOSUXIMIDE [Suspect]
     Active Substance: ETHOSUXIMIDE
     Indication: Epilepsy with myoclonic-atonic seizures
     Dosage: UNK
     Dates: end: 201705
  9. METHYLPREDNISOLONE [Suspect]
     Active Substance: METHYLPREDNISOLONE
     Indication: Product used for unknown indication
     Dosage: UNK,PULSATILE METHYLPREDNISOLONE THERAPY
  10. POTASSIUM BROMIDE [Suspect]
     Active Substance: POTASSIUM BROMIDE
     Indication: Epilepsy with myoclonic-atonic seizures
     Dosage: UNK

REACTIONS (7)
  - Altered state of consciousness [Unknown]
  - Status epilepticus [Recovered/Resolved]
  - Developmental delay [Unknown]
  - Ataxia [Unknown]
  - Encephalopathy [Unknown]
  - Fatigue [Unknown]
  - Somnolence [Unknown]

NARRATIVE: CASE EVENT DATE: 20130101
